FAERS Safety Report 12210219 (Version 1)
Quarter: 2016Q1

REPORT INFORMATION
  Report Type: Spontaneous
  Country: US (occurrence: None)
  Receive Date: 20160324
  Receipt Date: 20160324
  Transmission Date: 20160526
  Serious: No
  Sender: FDA-Public Use
  Company Number: None

PATIENT
  Age: 58 Year
  Sex: Female

DRUGS (1)
  1. HUMIRA [Suspect]
     Active Substance: ADALIMUMAB
     Indication: CROHN^S DISEASE
     Route: 058
     Dates: start: 201512

REACTIONS (6)
  - Dry mouth [None]
  - Depressed mood [None]
  - Tongue dry [None]
  - Depression [None]
  - Genital rash [None]
  - Nasal dryness [None]

NARRATIVE: CASE EVENT DATE: 20160315
